FAERS Safety Report 6781196-3 (Version None)
Quarter: 2010Q2

REPORT INFORMATION
  Report Type: 
  Country: None (occurrence: None)
  Receive Date: 20100617
  Receipt Date: 20100617
  Transmission Date: 20101027
  Serious: Yes (Other)
  Sender: FDA-Public Use
  Company Number: None

PATIENT
  Age: 75 Year
  Sex: Female
  Weight: 106.5953 kg

DRUGS (1)
  1. LIDODERM [Suspect]
     Indication: SPINAL FRACTURE
     Dosage: 1 PATCH EVERYDAY 12 HOURS (BACK)
     Dates: start: 20100301, end: 20100604

REACTIONS (4)
  - DRUG INEFFECTIVE [None]
  - NECK PAIN [None]
  - PAIN IN EXTREMITY [None]
  - ULCER [None]
